FAERS Safety Report 7211411-3 (Version None)
Quarter: 2011Q1

REPORT INFORMATION
  Report Type: 
  Country: None (occurrence: None)
  Receive Date: 20110105
  Receipt Date: 20101227
  Transmission Date: 20110831
  Serious: Yes (Other)
  Sender: FDA-Public Use
  Company Number: US-ABBOTT-10P-163-0694160-00

PATIENT
  Weight: 108.96 kg

DRUGS (3)
  1. HUMIRA [Suspect]
     Indication: PSORIASIS
     Route: 058
     Dates: start: 20080101, end: 20090101
  2. UNKNOWN ANTIBIOTIC (NON-ABBOTT) [Suspect]
     Indication: BRONCHITIS
     Dates: start: 20100101, end: 20100201
  3. HUMIRA [Suspect]
     Route: 058
     Dates: start: 20090101

REACTIONS (5)
  - FUNGAL INFECTION [None]
  - PSORIASIS [None]
  - ORAL FUNGAL INFECTION [None]
  - BRONCHITIS [None]
  - TONGUE ULCERATION [None]
